FAERS Safety Report 12252038 (Version 3)
Quarter: 2016Q2

REPORT INFORMATION
  Report Type: Spontaneous
  Country: AR (occurrence: AR)
  Receive Date: 20160411
  Receipt Date: 20160427
  Transmission Date: 20160815
  Serious: Yes (Other)
  Sender: FDA-Public Use
  Company Number: AR-SHIRE-AR201603840

PATIENT
  Age: 57 Year
  Sex: Male

DRUGS (3)
  1. FIRAZYR [Suspect]
     Active Substance: ICATIBANT ACETATE
     Indication: HEREDITARY ANGIOEDEMA
     Dosage: 30 MG, AS REQ^D
     Route: 058
     Dates: start: 2015, end: 201603
  2. BETAHISTINE DIHYDROCHLORIDE [Suspect]
     Active Substance: BETAHISTINE
     Indication: PRODUCT USED FOR UNKNOWN INDICATION
     Dosage: UNK UNK, UNKNOWN
     Route: 065
  3. RUSOVAS [Concomitant]
     Active Substance: ROSUVASTATIN
     Indication: PRODUCT USED FOR UNKNOWN INDICATION
     Dosage: UNK, UNKNOWN
     Route: 065

REACTIONS (15)
  - Hypotension [Recovered/Resolved]
  - Dizziness [Recovered/Resolved]
  - Face oedema [Recovered/Resolved]
  - Pruritus [Not Recovered/Not Resolved]
  - Dyspnoea [Recovered/Resolved]
  - Pallor [Recovered/Resolved]
  - Urticaria [Unknown]
  - Flatulence [Unknown]
  - Haemorrhoids [Unknown]
  - Fall [Recovered/Resolved]
  - Abdominal discomfort [Unknown]
  - Loss of consciousness [Recovered/Resolved]
  - Feeling abnormal [Recovered/Resolved]
  - Rash pustular [Unknown]
  - Abdominal pain [Unknown]

NARRATIVE: CASE EVENT DATE: 201603
